FAERS Safety Report 17750775 (Version 1)
Quarter: 2020Q2

REPORT INFORMATION
  Report Type: Spontaneous
  Country: US (occurrence: US)
  Receive Date: 20200506
  Receipt Date: 20200506
  Transmission Date: 20200714
  Serious: No
  Sender: FDA-Public Use
  Company Number: None

PATIENT
  Age: 14 Year
  Sex: Male
  Weight: 55.5 kg

DRUGS (5)
  1. CYCLOPHOSPHAMIDE. [Suspect]
     Active Substance: CYCLOPHOSPHAMIDE
     Dates: end: 20200413
  2. GLEEVEC [Suspect]
     Active Substance: IMATINIB MESYLATE
     Dates: end: 20200504
  3. CYTARABINE. [Suspect]
     Active Substance: CYTARABINE
     Dates: end: 20200423
  4. THIOGUARINE (6-TG) [Suspect]
     Active Substance: THIOGUANINE ANHYDROUS
     Dates: end: 20200426
  5. METHOTREXATE. [Suspect]
     Active Substance: METHOTREXATE
     Dates: end: 20200420

REACTIONS (8)
  - Haemoglobin decreased [None]
  - Contusion [None]
  - Nausea [None]
  - Body temperature abnormal [None]
  - Diarrhoea [None]
  - Blood pressure increased [None]
  - Petechiae [None]
  - Hypokalaemia [None]

NARRATIVE: CASE EVENT DATE: 20200504
